FAERS Safety Report 22387618 (Version 1)
Quarter: 2023Q2

REPORT INFORMATION
  Report Type: Spontaneous
  Country: US (occurrence: None)
  Receive Date: 20230530
  Receipt Date: 20230530
  Transmission Date: 20230721
  Serious: No
  Sender: FDA-Public Use
  Company Number: None

PATIENT
  Age: 36 Year
  Sex: Male
  Weight: 90.72 kg

DRUGS (3)
  1. HERBALS\MITRAGYNINE [Suspect]
     Active Substance: HERBALS\MITRAGYNINE
     Indication: Dependence
     Dosage: FREQUENCY : DAILY;?
     Route: 048
     Dates: start: 20180801, end: 20210701
  2. HERBALS\MITRAGYNINE [Suspect]
     Active Substance: HERBALS\MITRAGYNINE
     Indication: Substance dependence
  3. HERBALS\MITRAGYNINE [Suspect]
     Active Substance: HERBALS\MITRAGYNINE

REACTIONS (13)
  - Drug dependence [None]
  - Gallbladder disorder [None]
  - Loss of personal independence in daily activities [None]
  - Withdrawal syndrome [None]
  - Fatigue [None]
  - Headache [None]
  - Restlessness [None]
  - Apathy [None]
  - Psychotic disorder [None]
  - Anger [None]
  - Delusion [None]
  - Abdominal pain [None]
  - Irritability [None]

NARRATIVE: CASE EVENT DATE: 20230315
